FAERS Safety Report 5288945-4 (Version None)
Quarter: 2007Q2

REPORT INFORMATION
  Report Type: 
  Country: None (occurrence: None)
  Receive Date: 20070405
  Receipt Date: 20070326
  Transmission Date: 20071010
  Serious: Yes (Other)
  Sender: FDA-Public Use
  Company Number: US-PFIZER INC-2007008743

PATIENT
  Age: 21 Year
  Sex: Male
  Weight: 68 kg

DRUGS (6)
  1. VFEND [Suspect]
     Indication: BRONCHOPULMONARY ASPERGILLOSIS
     Route: 042
     Dates: start: 20070101, end: 20070101
  2. VFEND [Suspect]
     Indication: BRONCHOPULMONARY ASPERGILLOSIS
     Route: 048
     Dates: start: 20070101, end: 20070101
  3. CHEMOTHERAPY NOS [Concomitant]
  4. VANCOMYCIN [Concomitant]
  5. DIURETICS [Concomitant]
  6. MORPHINE [Concomitant]

REACTIONS (2)
  - INTUBATION [None]
  - VISUAL DISTURBANCE [None]
